FAERS Safety Report 13987351 (Version 3)
Quarter: 2018Q1

REPORT INFORMATION
  Report Type: Spontaneous
  Country: DE (occurrence: DE)
  Receive Date: 20170919
  Receipt Date: 20180207
  Transmission Date: 20180508
  Serious: Yes (Other)
  Sender: FDA-Public Use
  Company Number: DE-TEVA-805895GER

PATIENT
  Age: 78 Year
  Sex: Male
  Weight: 70 kg

DRUGS (7)
  1. L-THYROXIN [Concomitant]
     Active Substance: LEVOTHYROXINE SODIUM
     Dosage: 125 MICROGRAM DAILY; 1-0-0
  2. HEPARIN-NATRIUM-25 000-RATIOPHARM [Suspect]
     Active Substance: HEPARIN SODIUM
     Dosage: 40000 IU (INTERNATIONAL UNIT) DAILY;
     Route: 065
     Dates: start: 20170828, end: 20170828
  3. ASS 100 [Concomitant]
     Active Substance: ASPIRIN
     Dosage: 0-1-0
  4. BISOPROLOL 1.25 [Concomitant]
     Dosage: 1-0-0
  5. TRANEXAMIC ACID. [Suspect]
     Active Substance: TRANEXAMIC ACID
     Route: 065
     Dates: start: 20170828, end: 20170828
  6. RAMIPRIL 1.25 [Concomitant]
     Dosage: 1-0-0
  7. SIMVASTATIN 20 [Concomitant]
     Active Substance: SIMVASTATIN
     Dosage: 0-0-1

REACTIONS (3)
  - Vasodilatation [Recovered/Resolved]
  - Blood pressure decreased [Unknown]
  - Circulatory collapse [Unknown]

NARRATIVE: CASE EVENT DATE: 20170828
